FAERS Safety Report 9618165 (Version 2)
Quarter: 2015Q4

REPORT INFORMATION
  Report Type: Report from Study
  Country: US (occurrence: US)
  Receive Date: 20131014
  Receipt Date: 20151126
  Transmission Date: 20160305
  Serious: Yes (Other)
  Sender: FDA-Public Use
  Company Number: US-AMGEN-USASP2013071317

PATIENT
  Age: 49 Year
  Sex: Female

DRUGS (5)
  1. ENBREL [Suspect]
     Active Substance: ETANERCEPT
     Dosage: UNK
     Route: 065
     Dates: start: 201510
  2. ENBREL [Suspect]
     Active Substance: ETANERCEPT
     Dosage: UNK
     Route: 065
     Dates: end: 2015
  3. ENBREL [Suspect]
     Active Substance: ETANERCEPT
     Dosage: UNK
     Route: 065
  4. PLAQUENIL [Concomitant]
     Active Substance: HYDROXYCHLOROQUINE SULFATE
     Dosage: UNK
  5. ENBREL [Suspect]
     Active Substance: ETANERCEPT
     Indication: RHEUMATOID ARTHRITIS
     Dosage: 50 MG, QWK
     Route: 065
     Dates: start: 20090101, end: 20131003

REACTIONS (18)
  - Major depression [Unknown]
  - Feeling guilty [Unknown]
  - Pain in extremity [Not Recovered/Not Resolved]
  - Anxiety [Unknown]
  - Musculoskeletal stiffness [Not Recovered/Not Resolved]
  - Feeling abnormal [Unknown]
  - Benign bone neoplasm [Recovered/Resolved]
  - Bone neoplasm [Recovered/Resolved]
  - Meniscus injury [Recovered/Resolved]
  - Rheumatoid arthritis [Unknown]
  - Stress [Unknown]
  - Fatigue [Not Recovered/Not Resolved]
  - Bursitis [Unknown]
  - Intervertebral disc disorder [Unknown]
  - Spinal osteoarthritis [Not Recovered/Not Resolved]
  - Mental disorder [Unknown]
  - Neuralgia [Not Recovered/Not Resolved]
  - Weight decreased [Unknown]

NARRATIVE: CASE EVENT DATE: 2011
